FAERS Safety Report 11071461 (Version 1)
Quarter: 2015Q2

REPORT INFORMATION
  Report Type: Spontaneous
  Country: US (occurrence: None)
  Receive Date: 20150427
  Receipt Date: 20150427
  Transmission Date: 20150821
  Serious: Yes (Hospitalization)
  Sender: FDA-Public Use
  Company Number: None

PATIENT
  Sex: Female
  Weight: 55.3 kg

DRUGS (10)
  1. SOFOSBUVIR 400MG GILEAD [Suspect]
     Active Substance: SOFOSBUVIR
     Indication: HEPATITIS C
     Route: 048
     Dates: start: 20140307, end: 20140530
  2. NADOLOL. [Concomitant]
     Active Substance: NADOLOL
  3. LEXAPRO [Concomitant]
     Active Substance: ESCITALOPRAM OXALATE
  4. MEPHYTON [Concomitant]
     Active Substance: PHYTONADIONE
  5. RIBAVIRIN 200MG [Suspect]
     Active Substance: RIBAVIRIN
     Indication: HEPATITIS C
     Route: 048
     Dates: start: 20140307, end: 20140530
  6. ALBUTEROL. [Concomitant]
     Active Substance: ALBUTEROL
  7. MAGNESIUM OXIDE. [Concomitant]
     Active Substance: MAGNESIUM OXIDE
  8. METRONIDAZOLE. [Concomitant]
     Active Substance: METRONIDAZOLE
  9. KLOR-CON [Concomitant]
     Active Substance: POTASSIUM CHLORIDE
  10. RIFAXIMIN [Concomitant]
     Active Substance: RIFAXIMIN

REACTIONS (5)
  - Oedema [None]
  - Unevaluable event [None]
  - Anxiety [None]
  - Haemoglobin decreased [None]
  - Ascites [None]

NARRATIVE: CASE EVENT DATE: 20140504
